FAERS Safety Report 25740149 (Version 1)
Quarter: 2025Q3

REPORT INFORMATION
  Report Type: Spontaneous
  Country: JP (occurrence: JP)
  Receive Date: 20250829
  Receipt Date: 20250829
  Transmission Date: 20251021
  Serious: Yes (Other)
  Sender: STRIDES
  Company Number: None

PATIENT
  Age: 38 Year
  Sex: Male

DRUGS (9)
  1. PREDNISOLONE [Suspect]
     Active Substance: PREDNISOLONE
     Indication: Glomerulonephritis minimal lesion
     Route: 048
     Dates: start: 2012
  2. PREDNISOLONE SODIUM SUCCINATE [Suspect]
     Active Substance: PREDNISOLONE SODIUM SUCCINATE
     Indication: Glomerulonephritis minimal lesion
     Route: 042
     Dates: start: 201208, end: 2012
  3. WARFARIN [Suspect]
     Active Substance: WARFARIN
     Indication: Product used for unknown indication
     Route: 065
     Dates: start: 2012
  4. HEPARIN [Concomitant]
     Active Substance: HEPARIN SODIUM
     Indication: Product used for unknown indication
     Route: 042
     Dates: start: 201208
  5. FUROSEMIDE [Concomitant]
     Active Substance: FUROSEMIDE
     Indication: Generalised oedema
     Route: 065
     Dates: start: 2012
  6. MIZORIBINE [Concomitant]
     Active Substance: MIZORIBINE
     Indication: Glomerulonephritis minimal lesion
     Route: 048
     Dates: start: 2012, end: 2012
  7. CYCLOSPORINE [Concomitant]
     Active Substance: CYCLOSPORINE
     Indication: Glomerulonephritis minimal lesion
     Route: 048
     Dates: start: 2012
  8. LANSOPRAZOLE [Concomitant]
     Active Substance: LANSOPRAZOLE
     Indication: Product used for unknown indication
     Route: 065
     Dates: start: 2012
  9. CALCIUM CARBONATE [Concomitant]
     Active Substance: CALCIUM CARBONATE
     Indication: Product used for unknown indication
     Route: 065
     Dates: start: 2012

REACTIONS (4)
  - Calciphylaxis [Recovered/Resolved]
  - Bone metabolism disorder [Unknown]
  - Calcium metabolism disorder [Unknown]
  - Wound infection pseudomonas [Recovered/Resolved]

NARRATIVE: CASE EVENT DATE: 20130101
